FAERS Safety Report 11553791 (Version 1)
Quarter: 2015Q3

REPORT INFORMATION
  Report Type: Spontaneous
  Country: US (occurrence: US)
  Receive Date: 20150903
  Receipt Date: 20150903
  Transmission Date: 20151125
  Serious: No
  Sender: FDA-Public Use
  Company Number: US-ELI_LILLY_AND_COMPANY-US201007004064

PATIENT
  Age: 28 Year
  Sex: Female

DRUGS (2)
  1. NOVOLIN N [Concomitant]
     Active Substance: INSULIN HUMAN
     Dosage: 15 U, EACH EVENING
  2. HUMALOG [Suspect]
     Active Substance: INSULIN LISPRO
     Indication: GESTATIONAL DIABETES
     Dosage: UNK, AS NEEDED
     Dates: start: 20100624

REACTIONS (5)
  - Drug ineffective [Recovered/Resolved]
  - Expired product administered [Recovered/Resolved]
  - Drug dispensing error [Recovered/Resolved]
  - Blood glucose increased [Recovered/Resolved]
  - Exposure during pregnancy [Not Recovered/Not Resolved]

NARRATIVE: CASE EVENT DATE: 20100624
